FAERS Safety Report 19003600 (Version 2)
Quarter: 2021Q4

REPORT INFORMATION
  Report Type: Spontaneous
  Country: US (occurrence: US)
  Receive Date: 20210312
  Receipt Date: 20211022
  Transmission Date: 20220303
  Serious: No
  Sender: FDA-Public Use
  Company Number: US-PFIZER INC-2021171893

PATIENT
  Age: 65 Year
  Sex: Female

DRUGS (4)
  1. XELJANZ XR [Suspect]
     Active Substance: TOFACITINIB CITRATE
     Indication: Rheumatoid arthritis
     Dosage: 11 MG, 1X/DAY
  2. XELJANZ XR [Suspect]
     Active Substance: TOFACITINIB CITRATE
     Dosage: 11 MG, DAILY
     Route: 048
     Dates: start: 202008
  3. METHOTREXATE [Concomitant]
     Active Substance: METHOTREXATE
     Dosage: 12.5 MG, WEEKLY
  4. FOLIC ACID [Concomitant]
     Active Substance: FOLIC ACID
     Dosage: UNK

REACTIONS (10)
  - Circumstance or information capable of leading to medication error [Unknown]
  - Depressed mood [Unknown]
  - Fatigue [Unknown]
  - Inflammation [Recovering/Resolving]
  - Osteosclerosis [Unknown]
  - Pain in extremity [Unknown]
  - Skin papilloma [Unknown]
  - Stomatitis [Recovered/Resolved]
  - Swelling [Recovering/Resolving]
  - Tendon injury [Unknown]
